FAERS Safety Report 11338047 (Version 1)
Quarter: 2015Q3

REPORT INFORMATION
  Report Type: Spontaneous
  Country: US (occurrence: US)
  Receive Date: 20150803
  Receipt Date: 20150803
  Transmission Date: 20151125
  Serious: No
  Sender: FDA-Public Use
  Company Number: US-ELI_LILLY_AND_COMPANY-US201005000969

PATIENT
  Age: 28 Year
  Sex: Female
  Weight: 92 kg

DRUGS (4)
  1. ZYPREXA [Suspect]
     Active Substance: OLANZAPINE
     Indication: MENTAL DISORDER
     Dosage: 10 MG, DAILY (1/D)
     Dates: start: 20091208, end: 20100504
  2. TOPIRAMATE. [Concomitant]
     Active Substance: TOPIRAMATE
  3. CLONAZEPAM. [Concomitant]
     Active Substance: CLONAZEPAM
  4. PRENATAL VITAMINS /01549301/ [Concomitant]
     Active Substance: VITAMINS

REACTIONS (4)
  - Weight increased [Unknown]
  - Hypertension [Recovered/Resolved]
  - Pre-eclampsia [Recovered/Resolved]
  - Exposure during pregnancy [Recovered/Resolved]
